FAERS Safety Report 20320727 (Version 3)
Quarter: 2022Q1

REPORT INFORMATION
  Report Type: Spontaneous
  Country: US (occurrence: US)
  Receive Date: 20220111
  Receipt Date: 20220302
  Transmission Date: 20220423
  Serious: Yes (Hospitalization, Other)
  Sender: FDA-Public Use
  Company Number: US-BIOVITRUM-2022US00121

PATIENT
  Sex: Female

DRUGS (1)
  1. SYNAGIS [Suspect]
     Active Substance: PALIVIZUMAB
     Indication: Premature baby
     Dosage: (50MG/0.5ML), (100MG/ML)
     Route: 030
     Dates: start: 20211209

REACTIONS (2)
  - Pneumonia aspiration [Unknown]
  - Inappropriate schedule of product administration [Unknown]
